FAERS Safety Report 4760445-7 (Version None)
Quarter: 2005Q3

REPORT INFORMATION
  Report Type: 
  Country: None (occurrence: None)
  Receive Date: 20050902
  Receipt Date: 20050823
  Transmission Date: 20060218
  Serious: Yes (Other)
  Sender: FDA-Public Use
  Company Number: US-BRISTOL-MYERS SQUIBB COMPANY-13096292

PATIENT
  Sex: Male

DRUGS (4)
  1. STAVUDINE [Suspect]
  2. LAMIVUDINE [Suspect]
  3. RITONAVIR [Suspect]
  4. SAQUINAVIR [Suspect]

REACTIONS (2)
  - BLOOD TRIGLYCERIDES INCREASED [None]
  - XANTHOMA [None]
